FAERS Safety Report 18274230 (Version 5)
Quarter: 2020Q4

REPORT INFORMATION
  Report Type: Report from Study
  Country: EG (occurrence: EG)
  Receive Date: 20200916
  Receipt Date: 20201221
  Transmission Date: 20210113
  Serious: Yes (Hospitalization, Other)
  Sender: FDA-Public Use
  Company Number: EG-SEATTLE GENETICS-2019SGN03453

PATIENT
  Sex: Male

DRUGS (1)
  1. BRENTUXIMAB VEDOTIN [Suspect]
     Active Substance: BRENTUXIMAB VEDOTIN
     Indication: HODGKIN^S DISEASE REFRACTORY
     Dosage: UNK, Q3WEEKS
     Route: 042
     Dates: start: 20191002

REACTIONS (10)
  - Pyrexia [Not Recovered/Not Resolved]
  - Neutropenia [Unknown]
  - Oxygen saturation decreased [Unknown]
  - Cardiomyopathy [Unknown]
  - Hepatic enzyme increased [Unknown]
  - Bradycardia [Unknown]
  - Inflammation [Unknown]
  - White blood cell count decreased [Unknown]
  - Febrile neutropenia [Unknown]
  - Dyspepsia [Unknown]
